FAERS Safety Report 4647582-2 (Version None)
Quarter: 2005Q2

REPORT INFORMATION
  Report Type: 
  Country: None (occurrence: None)
  Receive Date: 20050427
  Receipt Date: 20050427
  Transmission Date: 20051028
  Serious: Yes (Other)
  Sender: FDA-Public Use
  Company Number: None

PATIENT
  Age: 48 Year
  Sex: Female
  Weight: 67.586 kg

DRUGS (2)
  1. HECTOROL [Suspect]
     Dosage: PO QID (0.5 MG)
     Route: 048
     Dates: start: 20041123
  2. CALCITRIOL [Suspect]
     Dosage: BID 1 (0.25 MCG)
     Dates: start: 20041201

REACTIONS (3)
  - DIZZINESS [None]
  - NAUSEA [None]
  - VOMITING [None]
